FAERS Safety Report 7268226-X (Version None)
Quarter: 2011Q1

REPORT INFORMATION
  Report Type: 
  Country: None (occurrence: None)
  Receive Date: 20110201
  Receipt Date: 20110125
  Transmission Date: 20110831
  Serious: Yes (Death)
  Sender: FDA-Public Use
  Company Number: PHHY2011US05949

PATIENT
  Age: 35 Year
  Sex: Female

DRUGS (2)
  1. OXCARBAZEPINE [Suspect]
     Indication: EPILEPSY
     Dosage: 2400 MG, QD
  2. TOPIRAMATE [Suspect]
     Indication: EPILEPSY
     Dosage: 200 MG, QD

REACTIONS (10)
  - CARDIO-RESPIRATORY ARREST [None]
  - COMA [None]
  - HYPOVENTILATION [None]
  - PARTIAL SEIZURES [None]
  - OBSTRUCTIVE AIRWAYS DISORDER [None]
  - HYPERCAPNIA [None]
  - TACHYPNOEA [None]
  - GRAND MAL CONVULSION [None]
  - POSTICTAL STATE [None]
  - ASPHYXIA [None]
